FAERS Safety Report 4472653-3 (Version None)
Quarter: 2004Q4

REPORT INFORMATION
  Report Type: 
  Country: None (occurrence: None)
  Receive Date: 20041012
  Receipt Date: 20041012
  Transmission Date: 20050328
  Serious: Yes (Hospitalization)
  Sender: FDA-Public Use
  Company Number: None

PATIENT
  Sex: Female
  Weight: 80.2867 kg

DRUGS (2)
  1. TAXOTERE [Suspect]
     Indication: OVARIAN CANCER
     Dosage: 141 MG, DAY 1, IV
     Route: 042
     Dates: start: 20040910
  2. GEMCITABINE 800 MG/M2 [Suspect]
     Indication: OVARIAN CANCER
     Dosage: 1,504 MG D1 AND 8 IV
     Route: 042
     Dates: start: 20040910

REACTIONS (2)
  - BODY TEMPERATURE INCREASED [None]
  - INFECTION [None]
